FAERS Safety Report 12618889 (Version 31)
Quarter: 2018Q3

REPORT INFORMATION
  Report Type: Report from Study
  Country: CA (occurrence: CA)
  Receive Date: 20160803
  Receipt Date: 20180808
  Transmission Date: 20181010
  Serious: Yes (Hospitalization, Other)
  Sender: FDA-Public Use
  Company Number: PHHY2016CA038031

PATIENT
  Age: 83 Year
  Sex: Male

DRUGS (7)
  1. SANDOSTATIN LAR DEPOT [Suspect]
     Active Substance: OCTREOTIDE ACETATE
     Indication: CARCINOID TUMOUR
     Dosage: 20 MG, QMO (EVERY 4 WEEKS)
     Route: 030
     Dates: start: 20160316, end: 20160715
  2. DOXYTAB [Concomitant]
     Indication: PROPHYLAXIS
     Dosage: 100 MG, QD
  3. SANDOSTATIN LAR DEPOT [Suspect]
     Active Substance: OCTREOTIDE ACETATE
     Dosage: UNK
     Route: 030
     Dates: start: 20170825
  4. SANDOSTATIN LAR DEPOT [Suspect]
     Active Substance: OCTREOTIDE ACETATE
     Dosage: 40 MG, QMO (ONCE A MONTH)
     Route: 030
     Dates: start: 20170308
  5. SANDOSTATIN LAR DEPOT [Suspect]
     Active Substance: OCTREOTIDE ACETATE
     Dosage: 30 MG, QMO (EVERY 4 WEEKS)
     Route: 030
     Dates: start: 20160812
  6. SANDOSTATIN LAR DEPOT [Suspect]
     Active Substance: OCTREOTIDE ACETATE
     Dosage: 40 MG, QMO (EVERY 4 WEEKS)
     Route: 030
  7. FUROSEMIDE. [Suspect]
     Active Substance: FUROSEMIDE
     Indication: PRODUCT USED FOR UNKNOWN INDICATION
     Dosage: UNK
     Route: 065

REACTIONS (35)
  - Malignant neoplasm progression [Unknown]
  - Platelet count decreased [Unknown]
  - Metastases to liver [Unknown]
  - Headache [Recovering/Resolving]
  - Blood pressure diastolic decreased [Unknown]
  - Pain [Unknown]
  - Hypokinesia [Unknown]
  - Bacteraemia [Unknown]
  - Escherichia infection [Unknown]
  - Enterococcal infection [Unknown]
  - Dizziness [Unknown]
  - Nausea [Unknown]
  - Oedema peripheral [Unknown]
  - Hypertension [Unknown]
  - Blood pressure increased [Unknown]
  - Blood pressure systolic increased [Unknown]
  - Bronchitis [Unknown]
  - Anxiety [Unknown]
  - Induration [Unknown]
  - Haemoptysis [Unknown]
  - Back pain [Unknown]
  - Food poisoning [Recovered/Resolved]
  - Clostridium difficile infection [Unknown]
  - Dementia [Unknown]
  - Dyspnoea [Unknown]
  - Body temperature decreased [Unknown]
  - Dyspnoea exertional [Unknown]
  - Nosocomial infection [Unknown]
  - Blood pressure decreased [Unknown]
  - White blood cell count increased [Unknown]
  - Productive cough [Unknown]
  - Transient ischaemic attack [Unknown]
  - Speech disorder [Recovering/Resolving]
  - Fatigue [Unknown]
  - Injection site inflammation [Unknown]

NARRATIVE: CASE EVENT DATE: 20160316
